FAERS Safety Report 5425554-8 (Version None)
Quarter: 2007Q3

REPORT INFORMATION
  Report Type: 
  Country: None (occurrence: None)
  Receive Date: 20070824
  Receipt Date: 20070813
  Transmission Date: 20080115
  Serious: Yes (Other)
  Sender: FDA-Public Use
  Company Number: US-PFIZER INC-2007060824

PATIENT
  Sex: Female
  Weight: 60.909 kg

DRUGS (8)
  1. CHANTIX [Suspect]
     Indication: SMOKING CESSATION THERAPY
  2. PRIMIDONE [Concomitant]
  3. SEROQUEL [Concomitant]
  4. LISINOPRIL [Concomitant]
  5. ACETAMINOPHEN W/ CODEINE [Concomitant]
  6. BELLATAMINAL [Concomitant]
  7. LEVOTHYROXINE SODIUM [Concomitant]
  8. CLONAZEPAM [Concomitant]

REACTIONS (2)
  - BREAST RECONSTRUCTION [None]
  - DRUG INEFFECTIVE [None]
